FAERS Safety Report 25585875 (Version 1)
Quarter: 2025Q3

REPORT INFORMATION
  Report Type: Spontaneous
  Country: CN (occurrence: CN)
  Receive Date: 20250721
  Receipt Date: 20250721
  Transmission Date: 20251021
  Serious: Yes (Other)
  Sender: BAYER HEALTHCARE PHARMACEUTICALS INC.
  Company Number: CN-BAYER-2025A096482

PATIENT
  Age: 55 Year
  Sex: Male
  Weight: 70 kg

DRUGS (3)
  1. ULTRAVIST [Suspect]
     Active Substance: IOPROMIDE
     Indication: Computerised tomogram pelvis
     Route: 042
     Dates: start: 20250711, end: 20250711
  2. ULTRAVIST [Suspect]
     Active Substance: IOPROMIDE
     Indication: Computerised tomogram pancreas
  3. ULTRAVIST [Suspect]
     Active Substance: IOPROMIDE
     Indication: Pancreatic carcinoma

REACTIONS (4)
  - Contrast media allergy [Unknown]
  - Nasal obstruction [Unknown]
  - Generalised oedema [Unknown]
  - Eyelid oedema [None]

NARRATIVE: CASE EVENT DATE: 20250711
